FAERS Safety Report 20719720 (Version 8)
Quarter: 2022Q4

REPORT INFORMATION
  Report Type: Report from Study
  Country: US (occurrence: US)
  Receive Date: 20220418
  Receipt Date: 20221124
  Transmission Date: 20230113
  Serious: No
  Sender: FDA-Public Use
  Company Number: US-NOVARTISTESTPH-NVSC2022US086651

PATIENT
  Sex: Female

DRUGS (2)
  1. COSENTYX [Suspect]
     Active Substance: SECUKINUMAB
     Indication: Psoriasis
     Dosage: 300 MG, EVERY WEEKLY, 5 WEEKS (SOLUTION FOR INFUSION)
     Route: 058
     Dates: start: 20220324
  2. COSENTYX [Suspect]
     Active Substance: SECUKINUMAB
     Indication: Psoriasis
     Dosage: 300 MG, EVERY 4 WEEKS
     Route: 058

REACTIONS (6)
  - Migraine [Recovering/Resolving]
  - Pruritus [Recovering/Resolving]
  - SARS-CoV-2 test positive [Recovering/Resolving]
  - Headache [Recovered/Resolved]
  - Nausea [Recovered/Resolved]
  - Rebound psoriasis [Recovering/Resolving]
